FAERS Safety Report 13176218 (Version 1)
Quarter: 2017Q1

REPORT INFORMATION
  Report Type: Spontaneous
  Country: FR (occurrence: FR)
  Receive Date: 20170201
  Receipt Date: 20170201
  Transmission Date: 20170428
  Serious: Yes (Hospitalization)
  Sender: FDA-Public Use
  Company Number: FR-SA-2017SA014809

PATIENT
  Age: 89 Year
  Sex: Male

DRUGS (4)
  1. PREVISCAN [Interacting]
     Active Substance: FLUINDIONE
     Dosage: 20 MG STRENGTH
     Route: 048
     Dates: end: 20170103
  2. KARDEGIC [Interacting]
     Active Substance: ASPIRIN LYSINE
     Route: 048
  3. PREVISCAN [Interacting]
     Active Substance: FLUINDIONE
     Route: 048
  4. PLAVIX [Suspect]
     Active Substance: CLOPIDOGREL BISULFATE
     Route: 048
     Dates: end: 20170103

REACTIONS (2)
  - Melaena [Recovered/Resolved]
  - International normalised ratio increased [Recovered/Resolved]

NARRATIVE: CASE EVENT DATE: 20161231
